FAERS Safety Report 5378640-5 (Version None)
Quarter: 2007Q3

REPORT INFORMATION
  Report Type: 
  Country: None (occurrence: None)
  Receive Date: 20070702
  Receipt Date: 20070702
  Transmission Date: 20080115
  Serious: Yes (Hospitalization)
  Sender: FDA-Public Use
  Company Number: None

PATIENT
  Age: 34 Year
  Sex: Female
  Weight: 54.4316 kg

DRUGS (1)
  1. NEXIUM [Suspect]
     Dosage: 1 DAILY

REACTIONS (2)
  - DRUG INEFFECTIVE [None]
  - HYPOAESTHESIA [None]
